FAERS Safety Report 9402277 (Version 4)
Quarter: 2015Q2

REPORT INFORMATION
  Report Type: Report from Study
  Country: FR (occurrence: FR)
  Receive Date: 20130716
  Receipt Date: 20150626
  Transmission Date: 20150821
  Serious: Yes (Hospitalization)
  Sender: FDA-Public Use
  Company Number: FR-UCBSA-091291

PATIENT
  Age: 50 Year
  Sex: Female
  Weight: 81 kg

DRUGS (10)
  1. CERTOLIZUMAB PEGOL RA [Suspect]
     Active Substance: CERTOLIZUMAB PEGOL
     Dosage: 200 MG, EV 2 WEEKS(QOW)
     Route: 058
     Dates: start: 20130417, end: 20130831
  2. CORTANCYL [Concomitant]
     Active Substance: PREDNISONE
     Indication: RHEUMATOID ARTHRITIS
     Dosage: 8 MG, ONCE DAILY (QD)
     Route: 048
     Dates: start: 200611, end: 201304
  3. ACUPAN [Concomitant]
     Active Substance: NEFOPAM HYDROCHLORIDE
     Indication: RHEUMATOID ARTHRITIS
     Dosage: 20 MG, ONCE DAILY (QD)
     Dates: start: 20130220, end: 201304
  4. METOJECT [Concomitant]
     Active Substance: METHOTREXATE SODIUM
     Indication: RHEUMATOID ARTHRITIS
     Dosage: 25 MG, WEEKLY (QW)
     Dates: start: 2009
  5. CERTOLIZUMAB PEGOL RA [Suspect]
     Active Substance: CERTOLIZUMAB PEGOL
     Indication: RHEUMATOID ARTHRITIS
     Dosage: 400 MG, EV 2 WEEKS(QOW)
     Route: 058
     Dates: start: 20130306, end: 20130403
  6. SPECIAFOLDINE [Concomitant]
     Active Substance: FOLIC ACID
     Indication: RHEUMATOID ARTHRITIS
     Dosage: 1.6 MG, WEEKLY (QW)
     Route: 048
     Dates: start: 2009
  7. LAMALINE [Concomitant]
     Active Substance: ACETAMINOPHEN\CAFFEINE\OPIUM
     Indication: RHEUMATOID ARTHRITIS
     Dosage: 1800 MG, ONCE DAILY (QD)
     Route: 048
     Dates: start: 20130114, end: 201304
  8. CERTOLIZUMAB PEGOL RA [Suspect]
     Active Substance: CERTOLIZUMAB PEGOL
     Dosage: UNK
  9. BIPROFENID [Concomitant]
     Active Substance: KETOPROFEN
     Dosage: 150 MG, AS NEEDED (PRN)
     Route: 048
     Dates: start: 20130606
  10. BIPROFENID [Concomitant]
     Active Substance: KETOPROFEN
     Indication: RHEUMATOID ARTHRITIS
     Dosage: 150 MG, ONCE DAILY (QD)
     Route: 048
     Dates: start: 20070630, end: 20130606

REACTIONS (2)
  - Dyspnoea [Recovered/Resolved]
  - Chest discomfort [Not Recovered/Not Resolved]

NARRATIVE: CASE EVENT DATE: 20130501
